FAERS Safety Report 14153477 (Version 2)
Quarter: 2019Q2

REPORT INFORMATION
  Report Type: Spontaneous
  Country: US (occurrence: US)
  Receive Date: 20171102
  Receipt Date: 20190515
  Transmission Date: 20190711
  Serious: No
  Sender: FDA-Public Use
  Company Number: US-SA-2017SA158213

PATIENT
  Age: 76 Year
  Sex: Female

DRUGS (3)
  1. PRALUENT [Suspect]
     Active Substance: ALIROCUMAB
     Indication: HYPERCHOLESTEROLAEMIA
     Dosage: 75 MG,QOW
     Route: 058
     Dates: start: 201702
  2. PRALUENT [Suspect]
     Active Substance: ALIROCUMAB
     Dosage: 150 MG,QOW
     Route: 058
     Dates: start: 201705
  3. PRALUENT [Suspect]
     Active Substance: ALIROCUMAB
     Dosage: 150 MG,QOW
     Route: 058
     Dates: start: 201802

REACTIONS (2)
  - Blood cholesterol increased [Not Recovered/Not Resolved]
  - Nasopharyngitis [Not Recovered/Not Resolved]

NARRATIVE: CASE EVENT DATE: 2017
